FAERS Safety Report 8812302 (Version 1)
Quarter: 2012Q4

REPORT INFORMATION
  Report Type: 
  Country: US (occurrence: US)
  Receive Date: 20120927
  Receipt Date: 20120927
  Transmission Date: 20130627
  Serious: Yes (Death, Hospitalization, Disabling, Other)
  Sender: FDA-Public Use
  Company Number: US-ROCHE-1102859

PATIENT
  Sex: Female

DRUGS (8)
  1. AVASTIN [Suspect]
     Indication: BREAST CANCER FEMALE
     Route: 065
     Dates: start: 20060324
  2. AVASTIN [Suspect]
     Indication: METASTASES TO LIVER
  3. TAMOXIFEN [Concomitant]
     Dosage: 6 cycles received
     Route: 065
  4. NAVELBINE [Concomitant]
     Route: 065
     Dates: start: 20060324
  5. GEMZAR [Concomitant]
     Route: 065
     Dates: start: 20060324
  6. CYCLOPHOSPHAMIDE [Concomitant]
  7. METHOTREXATE [Concomitant]
  8. FLUOROURACIL [Concomitant]

REACTIONS (7)
  - Death [Fatal]
  - Metastasis [Unknown]
  - Fatigue [Unknown]
  - Failure to thrive [Unknown]
  - Muscular weakness [Unknown]
  - Periorbital contusion [Unknown]
  - Anaemia [Unknown]
